FAERS Safety Report 6342163-7 (Version None)
Quarter: 2009Q3

REPORT INFORMATION
  Report Type: 
  Country: None (occurrence: None)
  Receive Date: 20090904
  Receipt Date: 20090904
  Transmission Date: 20100115
  Serious: Yes (Hospitalization)
  Sender: FDA-Public Use
  Company Number: None

PATIENT
  Sex: Male
  Weight: 80.9 kg

DRUGS (2)
  1. PACLITAXEL [Suspect]
     Indication: NON-SMALL CELL LUNG CANCER
     Dosage: NAB-PACLITAXEL  60MG/M2 WEEKLY IV
     Route: 042
     Dates: start: 20090722, end: 20090827
  2. CARBOPLATIN [Suspect]
     Dosage: CARBOPLATIN AUC-2 WEEKLY IV
     Route: 042
     Dates: start: 20090722, end: 20090827

REACTIONS (2)
  - NEUTROPHIL COUNT DECREASED [None]
  - PYREXIA [None]
